FAERS Safety Report 7339452-6 (Version None)
Quarter: 2011Q1

REPORT INFORMATION
  Report Type: 
  Country: None (occurrence: None)
  Receive Date: 20110308
  Receipt Date: 20110104
  Transmission Date: 20110831
  Serious: No
  Sender: FDA-Public Use
  Company Number: US-AMGEN-USASP2011000426

PATIENT
  Age: 78 Year
  Sex: Female

DRUGS (11)
  1. ASMANEX TWISTHALER [Concomitant]
  2. CRESTOR [Concomitant]
  3. NEXIUM [Concomitant]
  4. VITAMINS                           /90003601/ [Concomitant]
  5. VITAMIN A [Concomitant]
  6. SINGULAIR [Concomitant]
  7. CLARINEX                           /01202601/ [Concomitant]
  8. PROLIA [Suspect]
     Indication: OSTEOPOROSIS POSTMENOPAUSAL
     Dates: start: 20101103
  9. ALBUTEROL [Concomitant]
  10. LORTAB [Concomitant]
  11. CALCIUM [Concomitant]

REACTIONS (3)
  - GASTROINTESTINAL MOTILITY DISORDER [None]
  - DYSPEPSIA [None]
  - GASTROOESOPHAGEAL REFLUX DISEASE [None]
